FAERS Safety Report 15150211 (Version 1)
Quarter: 2018Q3

REPORT INFORMATION
  Report Type: Spontaneous
  Country: DE (occurrence: DE)
  Receive Date: 20180716
  Receipt Date: 20180716
  Transmission Date: 20181010
  Serious: Yes (Hospitalization)
  Sender: FDA-Public Use
  Company Number: DE-US WORLDMEDS, LLC-STA_00017047

PATIENT
  Sex: Male
  Weight: 60 kg

DRUGS (1)
  1. APOMORPHINE HYDROCHLORIDE [Suspect]
     Active Substance: APOMORPHINE HYDROCHLORIDE
     Indication: PARKINSON^S DISEASE
     Dosage: BASALRATE 4.6 MG/H FROM 7 AM TO 9 PM
     Route: 058
     Dates: start: 20130218

REACTIONS (2)
  - Jaundice [Not Recovered/Not Resolved]
  - Ocular icterus [Not Recovered/Not Resolved]
